FAERS Safety Report 5723592-9 (Version None)
Quarter: 2008Q2

REPORT INFORMATION
  Report Type: 
  Country: None (occurrence: None)
  Receive Date: 20080430
  Receipt Date: 20080430
  Transmission Date: 20081010
  Serious: Yes (Death)
  Sender: FDA-Public Use
  Company Number: None

PATIENT
  Sex: Male
  Weight: 108.8633 kg

DRUGS (2)
  1. HEPARIN [Suspect]
     Indication: COLON NEOPLASM
     Dosage: 1ML/DOSE IV
     Route: 042
     Dates: start: 20080112, end: 20080115
  2. HEPARIN [Suspect]
     Indication: SURGERY
     Dosage: 1ML/DOSE IV
     Route: 042
     Dates: start: 20080112, end: 20080115

REACTIONS (2)
  - PULMONARY EMBOLISM [None]
  - THERAPEUTIC PRODUCT CONTAMINATION [None]
